FAERS Safety Report 10183898 (Version 1)
Quarter: 2014Q2

REPORT INFORMATION
  Report Type: Spontaneous
  Country: US (occurrence: US)
  Receive Date: 20140520
  Receipt Date: 20140520
  Transmission Date: 20141212
  Serious: Yes (Death, Other)
  Sender: FDA-Public Use
  Company Number: US-BAYER-2014-074849

PATIENT
  Age: 77 Year
  Sex: Male

DRUGS (9)
  1. MOXIFLOXACIN IV [Suspect]
     Indication: DISSEMINATED TUBERCULOSIS
     Route: 042
  2. PAMIDRONATE [Concomitant]
     Indication: HYPERCALCAEMIA
     Route: 042
  3. CALCITONIN [Concomitant]
     Indication: HYPERCALCAEMIA
     Route: 058
  4. ISONIAZID [Concomitant]
     Indication: DISSEMINATED TUBERCULOSIS
     Route: 048
  5. RIFAMPIN [Concomitant]
     Indication: DISSEMINATED TUBERCULOSIS
     Route: 048
  6. RIFAMPIN [Concomitant]
     Indication: DISSEMINATED TUBERCULOSIS
     Route: 042
  7. PYRAZINAMIDE [Concomitant]
     Indication: DISSEMINATED TUBERCULOSIS
     Route: 048
  8. ETHAMBUTOL [Concomitant]
     Indication: DISSEMINATED TUBERCULOSIS
     Route: 048
  9. LINEZOLID [Concomitant]
     Indication: DISSEMINATED TUBERCULOSIS
     Route: 042

REACTIONS (4)
  - Respiratory failure [Fatal]
  - Pulseless electrical activity [Fatal]
  - Dyspnoea [None]
  - Off label use [None]
